FAERS Safety Report 6663590-4 (Version None)
Quarter: 2010Q2

REPORT INFORMATION
  Report Type: 
  Country: None (occurrence: None)
  Receive Date: 20100401
  Receipt Date: 20100329
  Transmission Date: 20101027
  Serious: Yes (Other)
  Sender: FDA-Public Use
  Company Number: US-BRISTOL-MYERS SQUIBB COMPANY-15039407

PATIENT
  Sex: Female

DRUGS (1)
  1. KENALOG [Suspect]
     Route: 014

REACTIONS (3)
  - ABASIA [None]
  - ARTHRALGIA [None]
  - DRUG HYPERSENSITIVITY [None]
